FAERS Safety Report 10272367 (Version 3)
Quarter: 2014Q3

REPORT INFORMATION
  Report Type: Spontaneous
  Country: US (occurrence: US)
  Receive Date: 20140702
  Receipt Date: 20140723
  Transmission Date: 20150326
  Serious: Yes (Other)
  Sender: FDA-Public Use
  Company Number: US-CELGENEUS-163-21880-14064477

PATIENT
  Age: 71 Year
  Sex: Female

DRUGS (4)
  1. REVLIMID [Suspect]
     Active Substance: LENALIDOMIDE
     Dosage: 5 MILLIGRAM
     Route: 048
     Dates: start: 201405
  2. BENAZEPRIL [Concomitant]
     Active Substance: BENAZEPRIL\BENAZEPRIL HYDROCHLORIDE
     Indication: HYPERTENSION
     Route: 065
  3. REVLIMID [Suspect]
     Active Substance: LENALIDOMIDE
     Indication: MYELODYSPLASTIC SYNDROME
     Dosage: 5 MILLIGRAM
     Route: 048
     Dates: start: 20130211
  4. REVLIMID [Suspect]
     Active Substance: LENALIDOMIDE
     Dosage: 2.5 MILLIGRAM
     Route: 048
     Dates: start: 201401

REACTIONS (11)
  - Hypokalaemia [Unknown]
  - Haemoglobin decreased [Unknown]
  - Peripheral coldness [Unknown]
  - Craniocerebral injury [Unknown]
  - Pain in extremity [Unknown]
  - Fall [Unknown]
  - Dysmenorrhoea [Unknown]
  - Pallor [Unknown]
  - Pyrexia [Not Recovered/Not Resolved]
  - Hypoaesthesia [Unknown]
  - Infected bites [Unknown]

NARRATIVE: CASE EVENT DATE: 201407
